FAERS Safety Report 17556469 (Version 3)
Quarter: 2020Q2

REPORT INFORMATION
  Report Type: Spontaneous
  Country: JP (occurrence: JP)
  Receive Date: 20200318
  Receipt Date: 20200415
  Transmission Date: 20200713
  Serious: Yes (Death, Hospitalization, Other)
  Sender: FDA-Public Use
  Company Number: JP-PFIZER INC-2020113927

PATIENT
  Age: 89 Year
  Sex: Female
  Weight: 40 kg

DRUGS (1)
  1. RHEUMATREX [Suspect]
     Active Substance: METHOTREXATE SODIUM
     Indication: RHEUMATOID ARTHRITIS
     Dosage: 8 MG, WEEKLY (4 CAPSULES)
     Route: 048
     Dates: start: 20200215, end: 20200302

REACTIONS (5)
  - Bacterial sepsis [Fatal]
  - Multiple organ dysfunction syndrome [Fatal]
  - Stomatitis [Not Recovered/Not Resolved]
  - Granulocytopenia [Fatal]
  - Accidental overdose [Fatal]

NARRATIVE: CASE EVENT DATE: 20200215
